FAERS Safety Report 12957456 (Version 1)
Quarter: 2016Q4

REPORT INFORMATION
  Report Type: Spontaneous
  Country: CH (occurrence: CH)
  Receive Date: 20161118
  Receipt Date: 20161118
  Transmission Date: 20170207
  Serious: Yes (Life-Threatening, Hospitalization)
  Sender: FDA-Public Use
  Company Number: CH-EISAI MEDICAL RESEARCH-EC-2016-022387

PATIENT
  Age: 15 Year
  Sex: Male
  Weight: 42 kg

DRUGS (7)
  1. CLONAZEPAM. [Interacting]
     Active Substance: CLONAZEPAM
     Indication: PARTIAL SEIZURES
     Route: 048
  2. PHENYTOIN. [Interacting]
     Active Substance: PHENYTOIN
     Indication: PARTIAL SEIZURES
     Route: 048
  3. MEROPENEM. [Interacting]
     Active Substance: MEROPENEM
     Indication: POSTOPERATIVE WOUND INFECTION
     Route: 041
     Dates: start: 20161002, end: 20161011
  4. ESOMEPRAZOL [Concomitant]
     Active Substance: ESOMEPRAZOLE
     Route: 048
  5. FYCOMPA [Suspect]
     Active Substance: PERAMPANEL
     Indication: PARTIAL SEIZURES
     Route: 048
  6. VALPROIC ACID. [Interacting]
     Active Substance: VALPROIC ACID
     Indication: PARTIAL SEIZURES
     Route: 048
  7. RIFAMPICIN [Interacting]
     Active Substance: RIFAMPIN
     Indication: POSTOPERATIVE WOUND INFECTION
     Route: 041
     Dates: start: 20161002, end: 20161011

REACTIONS (4)
  - Skin infection [Recovered/Resolved]
  - Drug interaction [Recovered/Resolved]
  - Status epilepticus [Recovered/Resolved]
  - Drug level decreased [Recovered/Resolved]

NARRATIVE: CASE EVENT DATE: 201610
